FAERS Safety Report 25497630 (Version 2)
Quarter: 2025Q3

REPORT INFORMATION
  Report Type: Spontaneous
  Country: US (occurrence: US)
  Receive Date: 20250701
  Receipt Date: 20250702
  Transmission Date: 20251020
  Serious: No
  Sender: NOBELPHARMA AMERICA, LLC
  Company Number: US-Nobelpharma America, LLC-NPA-2025-01104

PATIENT
  Sex: Female

DRUGS (1)
  1. HYFTOR [Suspect]
     Active Substance: SIROLIMUS
     Indication: Benign neoplasm
     Dosage: APPLY 1 APPLICATION TOPICALLY IN THE MORNING AND 1 APPLICATION BEFORE BEDTIME
     Route: 061
     Dates: start: 20250121

REACTIONS (3)
  - Dry skin [Unknown]
  - Product dose omission issue [Unknown]
  - Off label use [Unknown]
